FAERS Safety Report 8071156-7 (Version None)
Quarter: 2012Q1

REPORT INFORMATION
  Report Type: 
  Country: None (occurrence: None)
  Receive Date: 20120125
  Receipt Date: 20120116
  Transmission Date: 20120608
  Serious: Yes (Hospitalization)
  Sender: FDA-Public Use
  Company Number: PHHY2012AT003511

PATIENT
  Age: 75 Year
  Sex: Male

DRUGS (3)
  1. SPA100A [Suspect]
  2. ORAL ANTIDIABETICS [Concomitant]
  3. ANTIHYPERTENSIVE DRUGS [Concomitant]

REACTIONS (1)
  - RENAL FAILURE ACUTE [None]
